FAERS Safety Report 4446121-9 (Version None)
Quarter: 2004Q3

REPORT INFORMATION
  Report Type: 
  Country: None (occurrence: None)
  Receive Date: 20040907
  Receipt Date: 20040811
  Transmission Date: 20050211
  Serious: Yes (Hospitalization)
  Sender: FDA-Public Use
  Company Number: FR-ROCHE-377410

PATIENT
  Age: 32 Year
  Sex: Male
  Weight: 88 kg

DRUGS (3)
  1. PEG-INTERFERON ALFA 2A (RO 25-8310) [Suspect]
     Route: 058
     Dates: start: 20040326, end: 20040806
  2. RIBAVIRIN [Suspect]
     Route: 048
     Dates: start: 20040326, end: 20040810
  3. SUBUTEX [Concomitant]
     Dates: start: 20010615

REACTIONS (3)
  - INFECTIVE SPONDYLITIS [None]
  - INTERVERTEBRAL DISCITIS [None]
  - STAPHYLOCOCCAL INFECTION [None]
